FAERS Safety Report 8428065-0 (Version None)
Quarter: 2012Q2

REPORT INFORMATION
  Report Type: 
  Country: None (occurrence: None)
  Receive Date: 20120611
  Receipt Date: 20120529
  Transmission Date: 20120825
  Serious: No
  Sender: FDA-Public Use
  Company Number: US-ASTRAZENECA-2012SE34570

PATIENT
  Age: 51 Year
  Weight: 120.2 kg

DRUGS (3)
  1. CRESTOR [Suspect]
     Indication: BLOOD CHOLESTEROL
     Route: 048
  2. ASPIRIN [Concomitant]
  3. CRESTOR [Suspect]
     Route: 048

REACTIONS (11)
  - PANIC ATTACK [None]
  - NAUSEA [None]
  - PAIN [None]
  - WEIGHT INCREASED [None]
  - FATIGUE [None]
  - DIARRHOEA [None]
  - PYREXIA [None]
  - ANXIETY [None]
  - INSULIN RESISTANCE [None]
  - ABDOMINAL PAIN UPPER [None]
  - DISORIENTATION [None]
